FAERS Safety Report 25317341 (Version 1)
Quarter: 2025Q2

REPORT INFORMATION
  Report Type: Report from Study
  Country: US (occurrence: US)
  Receive Date: 20250515
  Receipt Date: 20250515
  Transmission Date: 20250716
  Serious: Yes (Hospitalization)
  Sender: TAKEDA
  Company Number: US-TAKEDA-2025TUS044507

PATIENT
  Sex: Female
  Weight: 61 kg

DRUGS (1)
  1. FRUQUINTINIB [Suspect]
     Active Substance: FRUQUINTINIB
     Indication: Colon cancer

REACTIONS (7)
  - Illness [Unknown]
  - Wound [Unknown]
  - Dehydration [Unknown]
  - Pain [Unknown]
  - Vomiting [Unknown]
  - Dysphonia [Recovering/Resolving]
  - Eating disorder symptom [Unknown]
